FAERS Safety Report 9340879 (Version 1)
Quarter: 2013Q2

REPORT INFORMATION
  Report Type: Spontaneous
  Country: ZA (occurrence: None)
  Receive Date: 20130605
  Receipt Date: 20130605
  Transmission Date: 20140414
  Serious: Yes (Death)
  Sender: FDA-Public Use
  Company Number: 1730599

PATIENT
  Age: 71 Year
  Sex: Female

DRUGS (25)
  1. (DEXMEDETOMIDINE HYDROCHLORIDE) [Suspect]
     Indication: OFF LABEL USE
     Dates: start: 20130429, end: 20130516
  2. (AMIOTACH) [Concomitant]
  3. (ALITRAQ) [Concomitant]
  4. (MERONEM) [Concomitant]
  5. (ZYVOXID) [Concomitant]
  6. (TARGOCID) [Concomitant]
  7. (MEROPENEM) [Concomitant]
  8. (TEICOPLANIN) [Concomitant]
  9. (TYGACIL) [Concomitant]
  10. (FRESUBIN ENERGY FIBRE) [Concomitant]
  11. (DIPEPTIVEN) [Concomitant]
  12. (ADRENALIN) [Concomitant]
  13. (NOVORAPID) [Concomitant]
  14. (MORPHINE SULPHATE) [Concomitant]
  15. (ALL OTHER THERAPEUTIC PRODUCTS) [Concomitant]
  16. PERFALGAN [Concomitant]
  17. (DIFLUCAN) [Concomitant]
  18. (KYTRIL) [Concomitant]
  19. (SOLU-CORTEF) [Concomitant]
  20. (MAXOLON) [Concomitant]
  21. (CLEXANE) [Concomitant]
  22. (NEXIUM) [Concomitant]
  23. (COMBIVENT) [Concomitant]
  24. (CORDARONE X) [Concomitant]
  25. (AMINOPHYLLINE) [Concomitant]

REACTIONS (1)
  - Death [None]
